FAERS Safety Report 8924699 (Version 1)
Quarter: 2012Q4

REPORT INFORMATION
  Report Type: 
  Country: US (occurrence: US)
  Receive Date: 20121126
  Receipt Date: 20121126
  Transmission Date: 20130627
  Serious: No
  Sender: FDA-Public Use
  Company Number: US-PFIZER INC-2012291856

PATIENT
  Sex: Female

DRUGS (2)
  1. TOVIAZ [Suspect]
     Indication: OVERACTIVE BLADDER
     Dosage: 4 mg, 1x/day
     Route: 048
     Dates: start: 20121103
  2. CRESTOR [Concomitant]
     Dosage: UNK

REACTIONS (1)
  - Dry mouth [Not Recovered/Not Resolved]
